FAERS Safety Report 7935369-4 (Version None)
Quarter: 2011Q4

REPORT INFORMATION
  Report Type: 
  Country: None (occurrence: None)
  Receive Date: 20111122
  Receipt Date: 20111117
  Transmission Date: 20120403
  Serious: Yes (Other)
  Sender: FDA-Public Use
  Company Number: US-GILEAD-2011-0047024

PATIENT
  Age: 79 Year
  Sex: Male

DRUGS (2)
  1. LETAIRIS [Suspect]
     Indication: PRODUCT USED FOR UNKNOWN INDICATION
     Dosage: 5 MG, UNK
     Route: 048
     Dates: start: 20111028, end: 20111114
  2. ADCIRCA [Concomitant]

REACTIONS (5)
  - FLUID OVERLOAD [None]
  - PANIC ATTACK [None]
  - DYSPNOEA [None]
  - OXYGEN SUPPLEMENTATION [None]
  - OXYGEN SATURATION DECREASED [None]
